FAERS Safety Report 7674818-6 (Version None)
Quarter: 2011Q3

REPORT INFORMATION
  Report Type: 
  Country: None (occurrence: None)
  Receive Date: 20110810
  Receipt Date: 20110804
  Transmission Date: 20111222
  Serious: Yes (Other)
  Sender: FDA-Public Use
  Company Number: AU-ROCHE-794988

PATIENT
  Age: 50 Year
  Sex: Male

DRUGS (5)
  1. FLUOROURACIL [Concomitant]
  2. AVASTIN [Suspect]
     Route: 065
  3. LEUCOVORIN CALCIUM [Concomitant]
  4. IRINOTECAN HCL [Concomitant]
  5. AVASTIN [Suspect]
     Route: 065

REACTIONS (1)
  - JOINT DISLOCATION [None]
